FAERS Safety Report 6674166 (Version 6)
Quarter: 2012Q4

REPORT INFORMATION
  Report Type: Report from Study
  Country: AR (occurrence: AR)
  Receive Date: 20080620
  Receipt Date: 20121015
  Transmission Date: 20130627
  Serious: Yes (Hospitalization, Other)
  Sender: FDA-Public Use
  Company Number: AR-PFIZER INC-2008047889

PATIENT
  Age: 67 Year
  Sex: Female
  Weight: 59 kg

DRUGS (8)
  1. EXEMESTANE [Suspect]
     Indication: BREAST CANCER
     Dosage: 25 mg, 1x/day
     Route: 048
     Dates: start: 20080327, end: 20080607
  2. LEVOTHYROXINE [Concomitant]
     Dosage: UNK
     Route: 048
     Dates: start: 1997
  3. ALPRAZOLAM [Concomitant]
     Dosage: UNK
     Route: 048
     Dates: start: 2000
  4. FLUOXETINE [Concomitant]
     Dosage: UNK
     Route: 048
     Dates: start: 2006
  5. SALMETEROL [Concomitant]
     Dosage: UNK
     Route: 055
     Dates: start: 20080404
  6. FLUTICASONE [Concomitant]
     Dosage: UNK
     Route: 055
     Dates: start: 20080404
  7. SALBUTAMOL [Concomitant]
     Dosage: UNK
     Route: 055
     Dates: start: 20080404, end: 20080527
  8. MEPREDNISONE [Concomitant]
     Dosage: UNK
     Route: 048
     Dates: start: 20080401, end: 20080527

REACTIONS (1)
  - Organising pneumonia [Recovered/Resolved]
